FAERS Safety Report 17092850 (Version 4)
Quarter: 2020Q3

REPORT INFORMATION
  Report Type: Spontaneous
  Country: US (occurrence: US)
  Receive Date: 20191129
  Receipt Date: 20200903
  Transmission Date: 20201102
  Serious: No
  Sender: FDA-Public Use
  Company Number: US-BIOGEN-2019BI00812297

PATIENT
  Sex: Male

DRUGS (2)
  1. TECFIDERA [Suspect]
     Active Substance: DIMETHYL FUMARATE
     Indication: MULTIPLE SCLEROSIS
     Route: 048
     Dates: start: 20191111, end: 20191117
  2. TECFIDERA [Suspect]
     Active Substance: DIMETHYL FUMARATE
     Route: 048
     Dates: start: 20191118

REACTIONS (6)
  - Pruritus [Recovered/Resolved with Sequelae]
  - Myalgia [Unknown]
  - Hot flush [Not Recovered/Not Resolved]
  - Influenza like illness [Unknown]
  - Abdominal discomfort [Unknown]
  - Product dose omission issue [Recovered/Resolved]
